FAERS Safety Report 7482062-0 (Version None)
Quarter: 2011Q2

REPORT INFORMATION
  Report Type: 
  Country: None (occurrence: None)
  Receive Date: 20110516
  Receipt Date: 20110502
  Transmission Date: 20111010
  Serious: Yes (Hospitalization)
  Sender: FDA-Public Use
  Company Number: PHHY2011AU36802

PATIENT
  Age: 29 Year
  Sex: Male

DRUGS (2)
  1. VALPROIC ACID [Suspect]
     Indication: BIPOLAR DISORDER
     Dosage: 4 G, UNK
  2. DIAZEPAM [Suspect]
     Indication: INSOMNIA
     Dosage: 75 MG, UNK

REACTIONS (18)
  - BRAIN OEDEMA [None]
  - PHYSICAL DISABILITY [None]
  - ALTERED STATE OF CONSCIOUSNESS [None]
  - PUPILLARY REFLEX IMPAIRED [None]
  - VISUAL ACUITY REDUCED [None]
  - HYPERAMMONAEMIA [None]
  - CEREBRAL INFARCTION [None]
  - AGITATION [None]
  - MYDRIASIS [None]
  - BRAIN HERNIATION [None]
  - INTENTIONAL OVERDOSE [None]
  - GAIT DISTURBANCE [None]
  - HEMIPARESIS [None]
  - ENCEPHALOPATHY [None]
  - VOMITING [None]
  - ASTHENIA [None]
  - COMA SCALE ABNORMAL [None]
  - GAZE PALSY [None]
